FAERS Safety Report 7782496-0 (Version None)
Quarter: 2011Q3

REPORT INFORMATION
  Report Type: 
  Country: None (occurrence: None)
  Receive Date: 20110928
  Receipt Date: 20110915
  Transmission Date: 20111222
  Serious: Yes (Hospitalization, Other)
  Sender: FDA-Public Use
  Company Number: US-RANBAXY-2011RR-44958

PATIENT
  Sex: Male

DRUGS (7)
  1. CIPROFLOXACIN [Suspect]
     Indication: BENIGN PROSTATIC HYPERPLASIA
     Dosage: 500 MG, UNK
     Route: 048
     Dates: start: 20080315
  2. CIPROFLOXACIN [Suspect]
     Indication: URINARY TRACT OBSTRUCTION
     Dosage: 500 MG, UNK
     Route: 048
     Dates: start: 20080401
  3. LEVAQUIN [Suspect]
     Indication: URINARY TRACT OBSTRUCTION
  4. LEVAQUIN [Suspect]
     Indication: URINARY TRACT INFECTION
     Dosage: UNK
     Route: 048
     Dates: start: 20080315, end: 20080512
  5. CIPROFLOXACIN [Suspect]
     Dosage: 500 MG, UNK
     Route: 048
     Dates: start: 20080512
  6. LEVAQUIN [Suspect]
     Indication: BENIGN PROSTATIC HYPERPLASIA
  7. CIPROFLOXACIN [Suspect]
     Indication: URINARY TRACT INFECTION
     Dosage: UNK
     Route: 048
     Dates: start: 20080315, end: 20080512

REACTIONS (2)
  - TENDON DISORDER [None]
  - TENDON RUPTURE [None]
